FAERS Safety Report 25771743 (Version 1)
Quarter: 2025Q3

REPORT INFORMATION
  Report Type: Spontaneous
  Country: CN (occurrence: CN)
  Receive Date: 20250908
  Receipt Date: 20250908
  Transmission Date: 20251020
  Serious: Yes (Other)
  Sender: BAXTER
  Company Number: None

PATIENT
  Age: 60 Year
  Sex: Female
  Weight: 66 kg

DRUGS (2)
  1. CYCLOPHOSPHAMIDE [Suspect]
     Active Substance: CYCLOPHOSPHAMIDE
     Indication: Breast cancer female
     Dosage: 1 G, EVERY 3 WK, ST
     Route: 041
     Dates: start: 20250619, end: 20250828
  2. DOCETAXEL [Suspect]
     Active Substance: DOCETAXEL
     Indication: Breast cancer female
     Dosage: 126 MG, EVERY 3 WK, ST
     Route: 041
     Dates: start: 20250619, end: 20250828

REACTIONS (3)
  - Tricuspid valve incompetence [Recovering/Resolving]
  - Chest discomfort [Recovering/Resolving]
  - Palpitations [Recovering/Resolving]

NARRATIVE: CASE EVENT DATE: 20250810
